FAERS Safety Report 9034457 (Version 2)
Quarter: 2013Q2

REPORT INFORMATION
  Report Type: Spontaneous
  Country: DE (occurrence: None)
  Receive Date: 20130114
  Receipt Date: 20130416
  Transmission Date: 20140414
  Serious: Yes (Other)
  Sender: FDA-Public Use
  Company Number: DSM-2013-00016

PATIENT
  Age: 75 Year
  Sex: Male

DRUGS (1)
  1. VOTUM PLUS [Suspect]
     Indication: HYPERTENSION
     Route: 048
     Dates: start: 201201, end: 20130211

REACTIONS (3)
  - Arrhythmia [None]
  - Influenza like illness [None]
  - Bronchitis [None]
